FAERS Safety Report 24617255 (Version 1)
Quarter: 2024Q4

REPORT INFORMATION
  Report Type: Report from Study
  Country: CN (occurrence: CN)
  Receive Date: 20241114
  Receipt Date: 20241114
  Transmission Date: 20250115
  Serious: Yes (Other)
  Sender: TAKEDA
  Company Number: CN-TAKEDA-2024TUS112699

PATIENT
  Sex: Male

DRUGS (1)
  1. IXAZOMIB [Suspect]
     Active Substance: IXAZOMIB
     Indication: Plasma cell myeloma
     Dosage: UNK

REACTIONS (6)
  - Loss of consciousness [Unknown]
  - Nerve injury [Unknown]
  - Urinary incontinence [Unknown]
  - Micturition urgency [Unknown]
  - Defaecation urgency [Unknown]
  - Asthenia [Unknown]
